FAERS Safety Report 4366148-5 (Version None)
Quarter: 2004Q2

REPORT INFORMATION
  Report Type: 
  Country: None (occurrence: None)
  Receive Date: 20040526
  Receipt Date: 20040526
  Transmission Date: 20050107
  Serious: No
  Sender: FDA-Public Use
  Company Number: None

PATIENT
  Sex: Female
  Weight: 122 kg

DRUGS (2)
  1. SIMVASTATIN [Suspect]
     Indication: HYPERLIPIDAEMIA
     Dosage: 20 MG HS ORAL
     Route: 048
  2. ROSIGLITAZONE 4 MG [Suspect]
     Indication: HYPERGLYCAEMIA
     Dosage: 4 MG QD ORAL
     Route: 048

REACTIONS (2)
  - MYOGLOBIN BLOOD INCREASED [None]
  - PANCYTOPENIA [None]
